FAERS Safety Report 4610560-3 (Version None)
Quarter: 2005Q1

REPORT INFORMATION
  Report Type: 
  Country: None (occurrence: None)
  Receive Date: 20050316
  Receipt Date: 20050308
  Transmission Date: 20050727
  Serious: Yes (Death)
  Sender: FDA-Public Use
  Company Number: 04-12-1823

PATIENT
  Age: 46 Year
  Sex: Female
  Weight: 151.5014 kg

DRUGS (5)
  1. CLOZAPINE [Suspect]
     Indication: SCHIZOPHRENIA
     Dosage: 450 MG BID ORAL
     Route: 048
     Dates: start: 19980801, end: 20041201
  2. LIPITOR [Concomitant]
  3. GLUCOVANCE [Concomitant]
  4. MICRONOR [Concomitant]
  5. OXAZEPAM [Concomitant]

REACTIONS (3)
  - CARDIAC ARREST [None]
  - CIRCULATORY COLLAPSE [None]
  - DIZZINESS [None]
